FAERS Safety Report 6160311-9 (Version None)
Quarter: 2009Q2

REPORT INFORMATION
  Report Type: 
  Country: None (occurrence: None)
  Receive Date: 20090416
  Receipt Date: 20090416
  Transmission Date: 20091009
  Serious: No
  Sender: FDA-Public Use
  Company Number: None

PATIENT
  Sex: Male
  Weight: 127.0072 kg

DRUGS (7)
  1. PROAIR HFA [Suspect]
     Indication: ASTHMA
     Dosage: 90 MCG (2 PUFFS) 3X DAY
     Route: 055
     Dates: start: 20070101
  2. PROAIR HFA [Suspect]
  3. PROAIR HFA [Suspect]
  4. PROAIR HFA [Suspect]
  5. PROAIR HFA [Suspect]
  6. PROAIR HFA [Suspect]
  7. ATROVENT HFA [Suspect]
     Indication: ASTHMA
     Dosage: 17 MCG (2 PUFFS) 4X DAY
     Dates: start: 20070101

REACTIONS (1)
  - PRODUCT QUALITY ISSUE [None]
